FAERS Safety Report 7142644-2 (Version None)
Quarter: 2010Q4

REPORT INFORMATION
  Report Type: 
  Country: None (occurrence: None)
  Receive Date: 20101112
  Receipt Date: 20100921
  Transmission Date: 20110411
  Serious: No
  Sender: FDA-Public Use
  Company Number: 1000016364

PATIENT
  Age: 70 Year
  Sex: Female

DRUGS (15)
  1. SAVELLA [Suspect]
     Indication: FIBROMYALGIA
     Dosage: (12.5 MG (12.5 MG, 1 IN 1 D) ORAL) (25 MG (12.5 MG, 2 IN 1 D) ORAL) (50 MG (25 MG, 2 IN 1 D) ORAL)
     Route: 048
     Dates: start: 20100816, end: 20100816
  2. SAVELLA [Suspect]
     Indication: FIBROMYALGIA
     Dosage: (12.5 MG (12.5 MG, 1 IN 1 D) ORAL) (25 MG (12.5 MG, 2 IN 1 D) ORAL) (50 MG (25 MG, 2 IN 1 D) ORAL)
     Route: 048
     Dates: start: 20100817, end: 20100818
  3. SAVELLA [Suspect]
     Indication: FIBROMYALGIA
     Dosage: (12.5 MG (12.5 MG, 1 IN 1 D) ORAL) (25 MG (12.5 MG, 2 IN 1 D) ORAL) (50 MG (25 MG, 2 IN 1 D) ORAL)
     Route: 048
     Dates: start: 20100819, end: 20100822
  4. SAVELLA [Suspect]
     Indication: FIBROMYALGIA
     Dosage: (12.5 MG (12.5 MG, 1 IN 1 D) ORAL) (25 MG (12.5 MG, 2 IN 1 D) ORAL) (50 MG (25 MG, 2 IN 1 D) ORAL)
     Route: 048
     Dates: start: 20100823
  5. ACTONEL [Concomitant]
  6. AMBIEN [Concomitant]
  7. SUMATRIPTAN [Concomitant]
  8. TOPAMAX [Concomitant]
  9. ZENPEP (PANCRELIPASE) [Concomitant]
  10. CALCIUM [Concomitant]
  11. CENTRUM MULTIVITAMINS [Concomitant]
  12. VITAMIN-B COMPLEX (NICOTINAM. W/ PYRIDOXI.HCL/RIBOFL./THIAM.HCL) [Concomitant]
  13. LOVAZA [Concomitant]
  14. VITAMIN D3 (COLECALIFEROL) [Concomitant]
  15. SODIUM BICARBONATE [Concomitant]

REACTIONS (1)
  - TACHYCARDIA [None]
